FAERS Safety Report 5169500-3 (Version None)
Quarter: 2006Q4

REPORT INFORMATION
  Report Type: 
  Country: None (occurrence: None)
  Receive Date: 20061211
  Receipt Date: 20061201
  Transmission Date: 20070319
  Serious: Yes (Hospitalization)
  Sender: FDA-Public Use
  Company Number: CZ-ABBOTT-06P-217-0352853-00

PATIENT
  Age: 60 Year
  Sex: Female
  Weight: 133 kg

DRUGS (1)
  1. MERIDIA [Suspect]
     Indication: OBESITY
     Route: 048
     Dates: start: 20060601

REACTIONS (6)
  - ERYSIPELAS [None]
  - HYPERSENSITIVITY [None]
  - PRURITUS [None]
  - SKIN ULCER [None]
  - VEIN DISORDER [None]
  - WEIGHT INCREASED [None]
